FAERS Safety Report 10174597 (Version 1)
Quarter: 2014Q2

REPORT INFORMATION
  Report Type: Spontaneous
  Country: US (occurrence: None)
  Receive Date: 20140416
  Receipt Date: 20140416
  Transmission Date: 20141212
  Serious: No
  Sender: FDA-Public Use
  Company Number: 163-POMAL-13112633

PATIENT
  Age: 83 Year
  Sex: Female
  Weight: 98.43 kg

DRUGS (2)
  1. POMALYST (POMALIDOMIDE) (4 MILLIGRAM, CAPSULES) [Suspect]
     Indication: PLASMA CELL MYELOMA
     Dosage: 21 IN 21 D
     Route: 048
     Dates: start: 20130904
  2. DECADRON (DEXAMETHASONE) [Concomitant]

REACTIONS (4)
  - Swelling face [None]
  - Weight increased [None]
  - Oedema peripheral [None]
  - Fatigue [None]
